FAERS Safety Report 18054469 (Version 1)
Quarter: 2020Q3

REPORT INFORMATION
  Report Type: Spontaneous
  Country: US (occurrence: US)
  Receive Date: 20200722
  Receipt Date: 20200722
  Transmission Date: 20201103
  Serious: Yes (Hospitalization, Disabling, Other)
  Sender: FDA-Public Use
  Company Number: US-PFIZER INC-2019505749

PATIENT
  Age: 87 Year
  Sex: Male
  Weight: 66.79 kg

DRUGS (2)
  1. VYNDAQEL [Suspect]
     Active Substance: TAFAMIDIS MEGLUMINE
     Indication: CARDIAC FAILURE CONGESTIVE
     Dosage: 80 MG
     Dates: start: 20191224
  2. VYNDAQEL [Suspect]
     Active Substance: TAFAMIDIS MEGLUMINE
     Indication: AMYLOIDOSIS

REACTIONS (7)
  - Dyspnoea [Recovered/Resolved]
  - Hepatic failure [Unknown]
  - Cardiac failure [Unknown]
  - Acute kidney injury [Unknown]
  - Oedema [Unknown]
  - Drug ineffective [Not Recovered/Not Resolved]
  - Dyspnoea at rest [Unknown]

NARRATIVE: CASE EVENT DATE: 20200609
